FAERS Safety Report 6328072-8 (Version None)
Quarter: 2009Q3

REPORT INFORMATION
  Report Type: 
  Country: None (occurrence: None)
  Receive Date: 20090825
  Receipt Date: 20090313
  Transmission Date: 20100115
  Serious: No
  Sender: FDA-Public Use
  Company Number: US-ABBOTT-08P-163-0483265-00

PATIENT
  Sex: Female

DRUGS (3)
  1. SYNTHROID [Suspect]
     Indication: AUTOIMMUNE THYROIDITIS
     Route: 048
     Dates: start: 20080101, end: 20081021
  2. SYNTHROID [Suspect]
     Route: 048
  3. TYLENOL (CAPLET) [Concomitant]
     Indication: HEADACHE

REACTIONS (5)
  - ERYTHEMA [None]
  - FATIGUE [None]
  - GASTRIC ULCER [None]
  - LIP SWELLING [None]
  - RASH [None]
